FAERS Safety Report 17117573 (Version 6)
Quarter: 2023Q1

REPORT INFORMATION
  Report Type: Report from Study
  Country: CY (occurrence: CY)
  Receive Date: 20191205
  Receipt Date: 20230105
  Transmission Date: 20230417
  Serious: Yes (Life-Threatening, Hospitalization)
  Sender: FDA-Public Use
  Company Number: CY-ROCHE-2112411

PATIENT
  Age: 74 Year
  Sex: Female
  Weight: 54 kg

DRUGS (38)
  1. TRASTUZUMAB [Suspect]
     Active Substance: TRASTUZUMAB
     Indication: HER2 positive breast cancer
     Dosage: MOST RECENT DOSE:10/FEB/2017
     Route: 042
     Dates: start: 20170210, end: 20170210
  2. VINORELBINE [Suspect]
     Active Substance: VINORELBINE TARTRATE
     Indication: HER2 positive breast cancer
     Dosage: MOST RECENT DOSE: 24/JAN/2018
     Route: 042
     Dates: start: 20170515, end: 20180124
  3. PACLITAXEL [Suspect]
     Active Substance: PACLITAXEL
     Indication: HER2 positive breast cancer
     Dosage: 60 MILLIGRAM/SQ. METER, QW
     Route: 042
     Dates: start: 20161122, end: 20161230
  4. PACLITAXEL [Suspect]
     Active Substance: PACLITAXEL
     Dosage: MOST RECENT DOSE:13/JAN/2017,30/DEC/2016
     Route: 042
     Dates: start: 20161122, end: 20161230
  5. PACLITAXEL [Suspect]
     Active Substance: PACLITAXEL
     Dosage: MOST RECENT DOSE:13/JAN/2017
     Route: 065
     Dates: end: 20170113
  6. PARAPLATIN [Suspect]
     Active Substance: CARBOPLATIN
     Indication: HER2 positive breast cancer
     Dosage: DATE OF MOST RECENT DOSE: 26/MAR/2018
     Route: 042
     Dates: start: 20180207
  7. GEMZAR [Suspect]
     Active Substance: GEMCITABINE HYDROCHLORIDE
     Indication: HER2 positive breast cancer
     Dosage: MOST RECENT DOSE: 02/APR/2018
     Route: 042
     Dates: start: 20180207
  8. Bepanthol [Concomitant]
     Indication: Dry skin
     Dosage: UNK
     Route: 065
     Dates: start: 20170217
  9. Bepanthol [Concomitant]
     Dosage: UNK
     Route: 065
     Dates: start: 20170830
  10. NYSTATIN [Concomitant]
     Active Substance: NYSTATIN
     Dosage: UNK(ONGOING = CHECKED)
     Route: 065
     Dates: start: 20161121
  11. CLOPIDOGREL BISULFATE [Concomitant]
     Active Substance: CLOPIDOGREL BISULFATE
     Dosage: UNK(ONGOING = CHECKED)
     Route: 065
     Dates: start: 20160315
  12. DENEX [Concomitant]
     Dosage: UNK(ONGOING = CHECKED)
     Route: 065
     Dates: start: 20160315
  13. PROMETHASIN [Concomitant]
     Dosage: UNK(ONGOING = NOT CHECKED)
     Route: 065
     Dates: start: 20161122, end: 20170324
  14. DEXAMETHASONE [Concomitant]
     Active Substance: DEXAMETHASONE
     Dosage: UNK(GOING = NOT CHECKED)
     Route: 065
     Dates: start: 20161122, end: 20170324
  15. METOCLOPRAMIDE HYDROCHLORIDE [Concomitant]
     Active Substance: METOCLOPRAMIDE HYDROCHLORIDE
     Dosage: UNK(ONGOING = NOT CHECKED)
     Route: 065
     Dates: start: 20161121, end: 20171220
  16. SIMVASTATIN [Concomitant]
     Active Substance: SIMVASTATIN
     Dosage: UNK(ONGOING = NOT CHECKED)
     Route: 065
     Dates: start: 20160315
  17. ASPIRIN [Concomitant]
     Active Substance: ASPIRIN
     Dosage: UNK
     Route: 065
     Dates: start: 20160315
  18. ASPIRIN [Concomitant]
     Active Substance: ASPIRIN
     Dosage: UNK(ONGOING = CHECKED)
     Route: 065
     Dates: start: 20160315
  19. RANITIDINE HYDROCHLORIDE [Concomitant]
     Active Substance: RANITIDINE HYDROCHLORIDE
     Dosage: UNK(ONGOING = NOT CHECKED)
     Route: 065
     Dates: start: 20161122, end: 20170324
  20. PLAVIX [Concomitant]
     Active Substance: CLOPIDOGREL BISULFATE
     Dosage: UNK(ONGOING = CHECKED)
     Route: 065
     Dates: start: 20170317
  21. OMEPRAZOLE [Concomitant]
     Active Substance: OMEPRAZOLE
     Indication: Gastrooesophageal reflux disease
     Dosage: UNK(ONGOING = NOT CHECKED)
     Route: 065
     Dates: start: 20170317, end: 20170318
  22. OMEPRAZOLE [Concomitant]
     Active Substance: OMEPRAZOLE
     Dosage: UNK
     Route: 065
     Dates: start: 20170522
  23. IBUPROFEN [Concomitant]
     Active Substance: IBUPROFEN
     Indication: Arthralgia
     Dosage: UNK
     Route: 065
     Dates: start: 20170620, end: 20180128
  24. ONDANSETRON [Concomitant]
     Active Substance: ONDANSETRON
     Dosage: UNK
     Route: 065
     Dates: start: 20180207, end: 20180208
  25. PEGFILGRASTIM [Concomitant]
     Active Substance: PEGFILGRASTIM
     Dosage: UNK
     Route: 065
     Dates: start: 20170606, end: 20180128
  26. RAMIPRIL [Concomitant]
     Active Substance: RAMIPRIL
     Dosage: UNK(ONGOING = CHECKED)
     Route: 065
     Dates: start: 20170317
  27. SPIRONOLACTONE [Concomitant]
     Active Substance: SPIRONOLACTONE
     Dosage: UNK(ONGOING = CHECKED)
     Route: 065
     Dates: start: 20170317
  28. LEVOTHYROXINE [Concomitant]
     Active Substance: LEVOTHYROXINE
     Dosage: UNK
     Route: 065
     Dates: start: 20160315
  29. DUPHALAC [Concomitant]
     Active Substance: LACTULOSE
     Indication: Constipation
     Dosage: UNK
     Route: 065
     Dates: start: 20170620
  30. AMBROXOL [Concomitant]
     Active Substance: AMBROXOL
     Indication: Cough
     Dosage: ONGOING = CHECKED
     Route: 065
     Dates: start: 20170319
  31. ATROVENT [Concomitant]
     Active Substance: IPRATROPIUM BROMIDE
     Indication: Hypersensitivity
     Dosage: UNK ONGOING = NOT CHECKED
     Route: 065
     Dates: start: 20170317, end: 20170319
  32. AMBROXOL HYDROCHLORIDE [Concomitant]
     Active Substance: AMBROXOL HYDROCHLORIDE
     Indication: Hypersensitivity
     Dosage: UNK, ONGOING = NOT CHECKED
     Route: 065
     Dates: start: 20170317, end: 20170319
  33. PULMICORT TURBUHALER [Concomitant]
     Active Substance: BUDESONIDE
     Indication: Hypersensitivity
     Dosage: UNK, ONGOING = NOT CHECKED
     Route: 065
     Dates: start: 20170317, end: 20170319
  34. FLUCONAZOLE [Concomitant]
     Active Substance: FLUCONAZOLE
     Indication: Stomatitis
     Dosage: UNK, ONGOING = NOT CHECKED
     Route: 065
     Dates: start: 20170906, end: 20170910
  35. FLUCONAZOLE [Concomitant]
     Active Substance: FLUCONAZOLE
     Dosage: UNK, ONGOING = NOT CHECKED
     Route: 065
     Dates: start: 20170816, end: 20170824
  36. FUROSEMIDE [Concomitant]
     Active Substance: FUROSEMIDE
     Indication: Hypersensitivity
     Dosage: UNK
     Route: 065
     Dates: start: 20170317, end: 20170317
  37. ZITHROMAX [Concomitant]
     Active Substance: AZITHROMYCIN DIHYDRATE
     Indication: Upper respiratory tract infection
     Dosage: UNK, ONGOING = NOT CHECKED
     Route: 065
     Dates: start: 20170310, end: 20170312
  38. ISOSORBIDE DINITRATE [Concomitant]
     Active Substance: ISOSORBIDE DINITRATE
     Indication: Hypersensitivity
     Dosage: UNK, ONGOING = NOT CHECKED
     Route: 065
     Dates: start: 20170317, end: 20170317

REACTIONS (24)
  - Hypersensitivity [Recovered/Resolved]
  - Eye disorder [Recovered/Resolved]
  - Urinary incontinence [Recovered/Resolved]
  - Amnesia [Recovered/Resolved]
  - Vision blurred [Recovered/Resolved]
  - Catheter site erythema [Recovered/Resolved]
  - Cushingoid [Recovered/Resolved]
  - Vulvovaginal mycotic infection [Recovered/Resolved]
  - Ageusia [Recovered/Resolved]
  - Conjunctivitis [Recovered/Resolved]
  - Fatigue [Recovered/Resolved]
  - Upper respiratory tract infection [Recovered/Resolved]
  - Peripheral sensory neuropathy [Recovered/Resolved]
  - Constipation [Recovered/Resolved]
  - Neutrophil count decreased [Recovered/Resolved]
  - Peripheral motor neuropathy [Recovered/Resolved]
  - Dry skin [Recovered/Resolved]
  - Depression [Recovered/Resolved]
  - Decreased appetite [Recovered/Resolved]
  - Stomatitis [Recovered/Resolved]
  - Nausea [Recovered/Resolved]
  - Cough [Recovered/Resolved]
  - White blood cell count decreased [Recovered/Resolved]
  - Lacrimation increased [Recovered/Resolved]

NARRATIVE: CASE EVENT DATE: 20170308
